FAERS Safety Report 5981386-3 (Version None)
Quarter: 2008Q4

REPORT INFORMATION
  Report Type: 
  Country: None (occurrence: None)
  Receive Date: 20081205
  Receipt Date: 20081124
  Transmission Date: 20090506
  Serious: Yes (Disabling)
  Sender: FDA-Public Use
  Company Number: US-JNJCH-2008056277

PATIENT
  Sex: Male
  Weight: 27.7 kg

DRUGS (1)
  1. SUDACARE SHOWER SOOTHERS [Suspect]
     Indication: MUSCULOSKELETAL STIFFNESS
     Dosage: TEXT:ONE TABLET ONCE
     Route: 055
     Dates: start: 20080229, end: 20080229

REACTIONS (16)
  - COUGH [None]
  - DECREASED APPETITE [None]
  - DIARRHOEA [None]
  - DYSURIA [None]
  - EXPOSURE TO TOXIC AGENT [None]
  - FLUID INTAKE REDUCED [None]
  - HAEMATURIA [None]
  - HEADACHE [None]
  - IMPAIRED WORK ABILITY [None]
  - NAUSEA [None]
  - OROPHARYNGEAL PAIN [None]
  - PAIN [None]
  - PYREXIA [None]
  - RHINORRHOEA [None]
  - URETHRITIS [None]
  - VOMITING [None]
